FAERS Safety Report 12522723 (Version 5)
Quarter: 2016Q4

REPORT INFORMATION
  Report Type: Report from Study
  Country: US (occurrence: US)
  Receive Date: 20160701
  Receipt Date: 20161202
  Transmission Date: 20170207
  Serious: No
  Sender: FDA-Public Use
  Company Number: PHEH2016US016428

PATIENT
  Sex: Male

DRUGS (1)
  1. SANDOSTATIN LAR DEPOT [Suspect]
     Active Substance: OCTREOTIDE ACETATE
     Indication: ACROMEGALY
     Dosage: 40 MG, QMO
     Route: 030

REACTIONS (6)
  - Injection site pain [Unknown]
  - Injection site erythema [Unknown]
  - Needle issue [Unknown]
  - Injection site reaction [Unknown]
  - Injection site mass [Unknown]
  - Injection site warmth [Unknown]
